FAERS Safety Report 8382970-2 (Version None)
Quarter: 2012Q2

REPORT INFORMATION
  Report Type: 
  Country: None (occurrence: None)
  Receive Date: 20120522
  Receipt Date: 20120511
  Transmission Date: 20120825
  Serious: Yes (Life-Threatening)
  Sender: FDA-Public Use
  Company Number: 217497

PATIENT
  Sex: Male

DRUGS (5)
  1. DIPIRIDAMOL (DIPYRIDAMOLE) [Concomitant]
  2. INNOHEP [Suspect]
     Indication: THROMBOSIS PROPHYLAXIS
     Dosage: 40000 IU/4 HOURS, INTRAVENOUS
     Route: 042
     Dates: start: 20120419, end: 20120505
  3. FOLIC ACID [Concomitant]
  4. BINOCRIT (EPOETIN ALFA) [Concomitant]
  5. CALCIUM ACETATE [Concomitant]

REACTIONS (2)
  - THROMBOSIS IN DEVICE [None]
  - HAEMODIALYSIS COMPLICATION [None]
